FAERS Safety Report 4407090-0 (Version None)
Quarter: 2004Q3

REPORT INFORMATION
  Report Type: 
  Country: None (occurrence: None)
  Receive Date: 20040721
  Receipt Date: 20040706
  Transmission Date: 20050211
  Serious: No
  Sender: FDA-Public Use
  Company Number: USA040155965

PATIENT
  Age: 74 Year
  Sex: Female

DRUGS (5)
  1. EVISTA [Suspect]
     Indication: OSTEOPENIA
     Dates: start: 20040701
  2. CALCIUM CARBONATE [Concomitant]
  3. VITAMIN D [Concomitant]
  4. ZOCOR [Concomitant]
  5. VITAMIN E [Concomitant]

REACTIONS (3)
  - MULTIPLE ALLERGIES [None]
  - MUSCLE CRAMP [None]
  - MUSCLE SPASMS [None]
